FAERS Safety Report 17932855 (Version 1)
Quarter: 2020Q2

REPORT INFORMATION
  Report Type: Spontaneous
  Country: DO (occurrence: DO)
  Receive Date: 20200623
  Receipt Date: 20200623
  Transmission Date: 20200714
  Serious: Yes (Other)
  Sender: FDA-Public Use
  Company Number: DO-PFIZER INC-2020241319

PATIENT
  Age: 73 Year
  Sex: Male

DRUGS (1)
  1. NORVASC [Suspect]
     Active Substance: AMLODIPINE BESYLATE
     Dosage: 1 TABLET, DAILY
     Route: 048

REACTIONS (2)
  - Cerebrovascular accident [Unknown]
  - Paralysis [Unknown]
